FAERS Safety Report 4330344-3 (Version None)
Quarter: 2004Q1

REPORT INFORMATION
  Report Type: 
  Country: None (occurrence: None)
  Receive Date: 20040329
  Receipt Date: 20040322
  Transmission Date: 20041129
  Serious: Yes (Hospitalization)
  Sender: FDA-Public Use
  Company Number: 200410148BFR

PATIENT
  Age: 76 Year
  Sex: Male

DRUGS (6)
  1. GLUCOR (ACARBOSE) [Suspect]
     Dosage: ORAL
     Route: 048
  2. METOPROLOL TARTRATE [Suspect]
  3. DEPAKINE CHRONO [Suspect]
     Dosage: 500 MG, ORAL
     Route: 048
  4. LASIX [Suspect]
  5. POTASSIUM CHLORIDE [Suspect]
  6. ASPIRIN [Concomitant]

REACTIONS (6)
  - ECZEMA [None]
  - ERYTHEMA MULTIFORME [None]
  - HEPATIC NEOPLASM MALIGNANT [None]
  - PARAESTHESIA [None]
  - PRURITUS [None]
  - TOXIC SKIN ERUPTION [None]
